FAERS Safety Report 6254584-1 (Version None)
Quarter: 2009Q3

REPORT INFORMATION
  Report Type: 
  Country: None (occurrence: None)
  Receive Date: 20090702
  Receipt Date: 20090623
  Transmission Date: 20100115
  Serious: Yes (Hospitalization)
  Sender: FDA-Public Use
  Company Number: A0792565A

PATIENT
  Age: 57 Year
  Sex: Female
  Weight: 115.5 kg

DRUGS (7)
  1. AVANDIA [Suspect]
     Indication: DIABETES MELLITUS
     Dosage: 4MG TWICE PER DAY
     Route: 048
     Dates: start: 19990709, end: 20050401
  2. TOPROL-XL [Concomitant]
  3. COZAAR [Concomitant]
  4. ZOCOR [Concomitant]
  5. GLYSET [Concomitant]
  6. PRANDIN [Concomitant]
  7. LANTUS [Concomitant]

REACTIONS (5)
  - CARDIAC FAILURE CONGESTIVE [None]
  - CORONARY ARTERY BYPASS [None]
  - CORONARY ARTERY DISEASE [None]
  - PLEURAL EFFUSION [None]
  - POST PROCEDURAL COMPLICATION [None]
